FAERS Safety Report 6110117-1 (Version None)
Quarter: 2009Q1

REPORT INFORMATION
  Report Type: 
  Country: None (occurrence: None)
  Receive Date: 20090310
  Receipt Date: 20090225
  Transmission Date: 20090719
  Serious: Yes (Other)
  Sender: FDA-Public Use
  Company Number: US-ROCHE-547020

PATIENT
  Age: 64 Year
  Sex: Female

DRUGS (5)
  1. TAMIFLU [Suspect]
     Route: 048
     Dates: start: 20080201, end: 20080206
  2. PREMARIN [Concomitant]
  3. BUPROPION HCL [Concomitant]
  4. FLUTICASONE PROPIONATE [Concomitant]
  5. NAPROSYN [Concomitant]

REACTIONS (6)
  - DEHYDRATION [None]
  - DELIRIUM [None]
  - DEPRESSION [None]
  - HYPOPHAGIA [None]
  - INSOMNIA [None]
  - PSYCHOTIC DISORDER [None]
